FAERS Safety Report 22886689 (Version 3)
Quarter: 2024Q3

REPORT INFORMATION
  Report Type: Spontaneous
  Country: US (occurrence: US)
  Receive Date: 20230831
  Receipt Date: 20240815
  Transmission Date: 20241016
  Serious: Yes (Other)
  Sender: BIOGEN
  Company Number: US-BIOGEN-2023BI01223579

PATIENT
  Age: 7 Year
  Sex: Male
  Weight: 38.5 kg

DRUGS (3)
  1. SPINRAZA [Suspect]
     Active Substance: NUSINERSEN
     Indication: Spinal muscular atrophy
     Dosage: RECEIVED HIS 4 LOADING DOSES (10/5, 10/19, 11/2, 11/30/22)
     Route: 050
     Dates: start: 20220510
  2. SPINRAZA [Suspect]
     Active Substance: NUSINERSEN
     Dosage: HAS BEEN ON MAINTENANCE DOSING SINCE
     Route: 050
  3. SPINRAZA [Suspect]
     Active Substance: NUSINERSEN
     Dosage: MOST RECENT ADMINISTRATION PRIOR TO THE EVENT WAS 08 FEB 2023
     Route: 050
     Dates: start: 20221005

REACTIONS (1)
  - Hepatic steatosis [Not Recovered/Not Resolved]

NARRATIVE: CASE EVENT DATE: 20230802
